FAERS Safety Report 5766726-2 (Version None)
Quarter: 2008Q2

REPORT INFORMATION
  Report Type: 
  Country: None (occurrence: None)
  Receive Date: 20080610
  Receipt Date: 20080610
  Transmission Date: 20081010
  Serious: Yes (Life-Threatening, Other)
  Sender: FDA-Public Use
  Company Number: None

PATIENT
  Age: 28 Year
  Sex: Male
  Weight: 88.4514 kg

DRUGS (1)
  1. CHANTIX [Suspect]
     Indication: SMOKING CESSATION THERAPY
     Dosage: 1MG  2 DAY
     Dates: start: 20080228, end: 20080306

REACTIONS (4)
  - FEELING ABNORMAL [None]
  - HALLUCINATION [None]
  - ILLUSION [None]
  - SUICIDAL IDEATION [None]
